FAERS Safety Report 7474638-1 (Version None)
Quarter: 2011Q1

REPORT INFORMATION
  Report Type: 
  Country: None (occurrence: None)
  Receive Date: 20110302
  Receipt Date: 20100720
  Transmission Date: 20110831
  Serious: Yes (Death, Disabling)
  Sender: FDA-Public Use
  Company Number: 163-21880-10040019

PATIENT
  Age: 74 Year
  Sex: Male

DRUGS (2)
  1. REVLIMID [Suspect]
     Indication: MULTIPLE MYELOMA
     Dosage: 15 MG, DAILY X 21 DAYS, PO; 10 MG, 21 DAYS ON, 7 DAYS OFF, PO
     Route: 048
     Dates: start: 20100301
  2. REVLIMID [Suspect]
     Indication: MULTIPLE MYELOMA
     Dosage: 15 MG, DAILY X 21 DAYS, PO; 10 MG, 21 DAYS ON, 7 DAYS OFF, PO
     Route: 048
     Dates: start: 20090423

REACTIONS (3)
  - NERVE INJURY [None]
  - BALANCE DISORDER [None]
  - DISEASE PROGRESSION [None]
